FAERS Safety Report 17655330 (Version 1)
Quarter: 2020Q2

REPORT INFORMATION
  Report Type: Spontaneous
  Country: US (occurrence: US)
  Receive Date: 20200410
  Receipt Date: 20200410
  Transmission Date: 20200713
  Serious: No
  Sender: FDA-Public Use
  Company Number: US-BAUSCH-BL-2020-008076

PATIENT
  Sex: Male

DRUGS (2)
  1. TRULANCE [Suspect]
     Active Substance: PLECANATIDE
     Indication: GASTROINTESTINAL MOTILITY DISORDER
     Dosage: ONCE EVERY OTHER DAY
     Route: 048
     Dates: start: 20200311
  2. TRULANCE [Suspect]
     Active Substance: PLECANATIDE
     Indication: PRODUCT USE IN UNAPPROVED INDICATION

REACTIONS (4)
  - Headache [Unknown]
  - Muscle spasms [Unknown]
  - Defaecation urgency [Unknown]
  - Product use in unapproved indication [Unknown]

NARRATIVE: CASE EVENT DATE: 20200311
